FAERS Safety Report 6156552-7 (Version None)
Quarter: 2009Q2

REPORT INFORMATION
  Report Type: 
  Country: None (occurrence: None)
  Receive Date: 20090416
  Receipt Date: 20090410
  Transmission Date: 20091009
  Serious: Yes (Other)
  Sender: FDA-Public Use
  Company Number: US-ASTRAZENECA-2009UW09101

PATIENT
  Age: 50 Year
  Sex: Male
  Weight: 86.2 kg

DRUGS (3)
  1. CRESTOR [Suspect]
     Indication: BLOOD CHOLESTEROL INCREASED
     Route: 048
     Dates: start: 20080101, end: 20090327
  2. LOTREL [Concomitant]
     Indication: HYPERTENSION
     Dosage: 10/20
     Route: 048
  3. ERYTHROMYCIN [Concomitant]
     Route: 048

REACTIONS (12)
  - ARTHRALGIA [None]
  - BACK PAIN [None]
  - C-REACTIVE PROTEIN INCREASED [None]
  - GASTROENTERITIS [None]
  - IMMOBILE [None]
  - JOINT INJURY [None]
  - MUSCLE SPASMS [None]
  - MUSCULOSKELETAL DISCOMFORT [None]
  - MYOSITIS [None]
  - PAIN [None]
  - RED BLOOD CELL SEDIMENTATION RATE INCREASED [None]
  - WEIGHT BEARING DIFFICULTY [None]
